FAERS Safety Report 15389248 (Version 2)
Quarter: 2018Q4

REPORT INFORMATION
  Report Type: Spontaneous
  Country: US (occurrence: US)
  Receive Date: 20180917
  Receipt Date: 20181009
  Transmission Date: 20190204
  Serious: Yes (Hospitalization, Disabling, Other)
  Sender: FDA-Public Use
  Company Number: PHEH2018US037892

PATIENT
  Age: 50 Year
  Sex: Female
  Weight: 80 kg

DRUGS (8)
  1. RYDAPT [Suspect]
     Active Substance: MIDOSTAURIN
     Indication: ACUTE MYELOID LEUKAEMIA
     Dosage: UNK
     Route: 065
  2. RYDAPT [Suspect]
     Active Substance: MIDOSTAURIN
     Dosage: 50 MG, BID
     Route: 048
     Dates: start: 20180612, end: 20180625
  3. CYTARABINE. [Suspect]
     Active Substance: CYTARABINE
     Indication: ACUTE MYELOID LEUKAEMIA
     Dosage: 100 MG/M2 CIV UNK
     Route: 042
     Dates: start: 20180602, end: 20180608
  4. CYTARABINE. [Suspect]
     Active Substance: CYTARABINE
     Dosage: 3 GM/M2 BID
     Route: 042
     Dates: start: 20180711, end: 20180715
  5. RYDAPT [Suspect]
     Active Substance: MIDOSTAURIN
     Dosage: 50 MG, BID
     Route: 048
     Dates: start: 20180815, end: 20180828
  6. CYTARABINE. [Suspect]
     Active Substance: CYTARABINE
     Dosage: 3 GM/M2 BID
     Route: 042
     Dates: start: 20180808, end: 20180812
  7. RYDAPT [Suspect]
     Active Substance: MIDOSTAURIN
     Dosage: 50 MG, BID
     Route: 048
     Dates: start: 20180718, end: 20180731
  8. DAUNORUBICIN [Suspect]
     Active Substance: DAUNORUBICIN
     Indication: ACUTE MYELOID LEUKAEMIA
     Dosage: 90 MG/M2, QD
     Route: 042
     Dates: start: 20180602, end: 20180604

REACTIONS (13)
  - Abdominal discomfort [Unknown]
  - Cardiac failure [Not Recovered/Not Resolved]
  - Fatigue [Unknown]
  - Hypertension [Unknown]
  - Venous pressure jugular increased [Unknown]
  - Decreased appetite [Unknown]
  - Pulmonary oedema [Unknown]
  - Orthopnoea [Unknown]
  - Febrile neutropenia [Unknown]
  - Oedema peripheral [Unknown]
  - Dyspnoea [Unknown]
  - Ejection fraction decreased [Unknown]
  - Weight increased [Unknown]

NARRATIVE: CASE EVENT DATE: 20180830
